FAERS Safety Report 9163904 (Version 2)
Quarter: 2013Q2

REPORT INFORMATION
  Report Type: Report from Study
  Country: DE (occurrence: DE)
  Receive Date: 20130314
  Receipt Date: 20130502
  Transmission Date: 20140414
  Serious: Yes (Hospitalization, Other)
  Sender: FDA-Public Use
  Company Number: DE-UCBSA-080382

PATIENT
  Age: 50 Year
  Sex: Female

DRUGS (9)
  1. VIMPAT [Suspect]
     Indication: EPILEPSY
     Dosage: STARTING DOSE 50 MG/DAY
     Dates: start: 20090331, end: 2009
  2. VIMPAT [Suspect]
     Indication: EPILEPSY
     Dosage: DOSE AT VISIT 400 MG/DAY
     Dates: start: 2009, end: 2009
  3. VIMPAT [Suspect]
     Indication: EPILEPSY
     Dosage: DOSAGE : 50 MG/DAY
     Dates: start: 2009, end: 20091230
  4. VALPROATE [Concomitant]
     Indication: EPILEPSY
     Dosage: 600 MG/DAY
     Dates: start: 2009
  5. OXCARBAZEPINE [Concomitant]
     Indication: EPILEPSY
     Dosage: DOSE 1650 MG/DAY
     Dates: end: 2009
  6. OXCARBAZEPINE [Concomitant]
     Indication: EPILEPSY
     Dosage: DOSE REDUCTION 1200 MG/DAY
     Dates: start: 2009
  7. ZONISAMIDE [Concomitant]
     Indication: EPILEPSY
     Dosage: DOSE 400 MG/DAY
     Dates: end: 2009
  8. PHENOBARBITONE [Concomitant]
     Indication: EPILEPSY
     Dosage: DOSE 125 MG/DAY
  9. LAMOTRIGINE [Concomitant]
     Indication: EPILEPSY
     Dosage: 200 MG/DAY
     Dates: start: 2009

REACTIONS (3)
  - Convulsion [Unknown]
  - Partial seizures [Unknown]
  - Drug ineffective [Recovered/Resolved]
